FAERS Safety Report 22626645 (Version 1)
Quarter: 2023Q2

REPORT INFORMATION
  Report Type: Report from Study
  Country: US (occurrence: US)
  Receive Date: 20230621
  Receipt Date: 20230621
  Transmission Date: 20230722
  Serious: Yes (Other)
  Sender: FDA-Public Use
  Company Number: US-ABBVIE-5298366

PATIENT
  Sex: Female

DRUGS (1)
  1. HUMIRA [Suspect]
     Active Substance: ADALIMUMAB
     Indication: Rheumatoid arthritis
     Dosage: CITRATE FREE, STRENGTH-40 MG
     Route: 058
     Dates: start: 20201202

REACTIONS (4)
  - Shoulder operation [Unknown]
  - Knee operation [Unknown]
  - Rehabilitation therapy [Unknown]
  - Ligament rupture [Unknown]
